FAERS Safety Report 9419454 (Version 2)
Quarter: 2013Q3

REPORT INFORMATION
  Report Type: Spontaneous
  Country: JP (occurrence: JP)
  Receive Date: 20130725
  Receipt Date: 20130809
  Transmission Date: 20140515
  Serious: No
  Sender: FDA-Public Use
  Company Number: JP-PFIZER INC-2013215943

PATIENT
  Age: 42 Year
  Sex: Male

DRUGS (2)
  1. CHAMPIX [Suspect]
     Dosage: 1 MG, 2X/DAY
  2. CHAMPIX [Suspect]
     Dosage: HALF OF 1 MG, 2X/DAY

REACTIONS (1)
  - Nausea [Recovered/Resolved]
